FAERS Safety Report 8545764-0 (Version None)
Quarter: 2012Q3

REPORT INFORMATION
  Report Type: 
  Country: None (occurrence: None)
  Receive Date: 20120727
  Receipt Date: 20120723
  Transmission Date: 20120928
  Serious: Yes (Hospitalization, Other)
  Sender: FDA-Public Use
  Company Number: US-009507513-1207USA010282

PATIENT

DRUGS (3)
  1. AMARYL [Concomitant]
     Route: 048
  2. JANUVIA [Suspect]
     Dosage: UNK
     Route: 048
  3. METFORMIN HCL [Suspect]
     Dosage: UNK
     Route: 048

REACTIONS (4)
  - HEPATIC FUNCTION ABNORMAL [None]
  - JAUNDICE [None]
  - ASPARTATE AMINOTRANSFERASE INCREASED [None]
  - ALANINE AMINOTRANSFERASE INCREASED [None]
